FAERS Safety Report 8271621-3 (Version None)
Quarter: 2012Q2

REPORT INFORMATION
  Report Type: 
  Country: None (occurrence: None)
  Receive Date: 20120410
  Receipt Date: 20120330
  Transmission Date: 20120825
  Serious: Yes (Hospitalization)
  Sender: FDA-Public Use
  Company Number: US-GLAXOSMITHKLINE-A0971600A

PATIENT
  Sex: Male

DRUGS (2)
  1. ADVAIR DISKUS 100/50 [Suspect]
     Indication: CHRONIC OBSTRUCTIVE PULMONARY DISEASE
  2. UNKNOWN [Concomitant]

REACTIONS (6)
  - DECREASED IMMUNE RESPONSIVENESS [None]
  - ORAL CANDIDIASIS [None]
  - PULMONARY FUNCTION CHALLENGE TEST ABNORMAL [None]
  - ASTHENIA [None]
  - TOTAL LUNG CAPACITY DECREASED [None]
  - CHRONIC OBSTRUCTIVE PULMONARY DISEASE [None]
